FAERS Safety Report 8555888 (Version 6)
Quarter: 2013Q2

REPORT INFORMATION
  Report Type: Report from Study
  Country: ES (occurrence: ES)
  Receive Date: 20120510
  Receipt Date: 20130415
  Transmission Date: 20140414
  Serious: Yes (Hospitalization)
  Sender: FDA-Public Use
  Company Number: ES-ROCHE-1064764

PATIENT
  Age: 67 Year
  Sex: Female
  Weight: 58 kg

DRUGS (11)
  1. VEMURAFENIB [Suspect]
     Indication: MALIGNANT MELANOMA
     Dosage: LAST DOSE PRIOR TO SAE ON 26/APR/2012
     Route: 048
     Dates: start: 20120416, end: 20120429
  2. VEMURAFENIB [Suspect]
     Route: 048
     Dates: start: 20120525
  3. TACROLIMUS [Concomitant]
     Route: 065
     Dates: start: 200511
  4. EVEROLIMUS [Concomitant]
     Route: 065
     Dates: start: 200511
  5. RANITIDINA [Concomitant]
     Route: 065
     Dates: start: 20110912
  6. DOXAZOSINA [Concomitant]
     Route: 065
     Dates: start: 20111230
  7. CARVEDILOL [Concomitant]
     Route: 065
     Dates: start: 20091020
  8. SIMVASTATIN [Concomitant]
     Route: 065
     Dates: start: 20111230
  9. ALENDRONIC ACID [Concomitant]
     Route: 065
     Dates: start: 20120217, end: 20120517
  10. COLECALCIFEROL [Concomitant]
     Route: 065
     Dates: start: 20111230
  11. LORMETAZEPAM [Concomitant]
     Route: 065
     Dates: start: 20111230

REACTIONS (1)
  - Renal impairment [Recovered/Resolved with Sequelae]
